FAERS Safety Report 19744726 (Version 1)
Quarter: 2021Q3

REPORT INFORMATION
  Report Type: Spontaneous
  Country: US (occurrence: US)
  Receive Date: 20210824
  Receipt Date: 20210824
  Transmission Date: 20211014
  Serious: Yes (Hospitalization)
  Sender: FDA-Public Use
  Company Number: None

PATIENT
  Age: 57 Year
  Sex: Male
  Weight: 81.8 kg

DRUGS (4)
  1. IMDEVIMAB. [Concomitant]
     Active Substance: IMDEVIMAB
     Dates: start: 20210823, end: 20210823
  2. IMDEVIMAB. [Suspect]
     Active Substance: IMDEVIMAB
     Indication: INTENTIONAL PRODUCT USE ISSUE
     Dosage: ?          OTHER FREQUENCY:ONCE;?
     Route: 042
     Dates: start: 20210823, end: 20210823
  3. CASIRIVIMAB. [Suspect]
     Active Substance: CASIRIVIMAB
     Indication: INTENTIONAL PRODUCT USE ISSUE
     Dosage: ?          OTHER FREQUENCY:ONCE;?
     Route: 042
     Dates: start: 20210823, end: 20210823
  4. CASIRIVIMAB. [Concomitant]
     Active Substance: CASIRIVIMAB
     Dates: start: 20210823, end: 20210823

REACTIONS (1)
  - Emergency care [None]

NARRATIVE: CASE EVENT DATE: 20210823
